FAERS Safety Report 18192179 (Version 7)
Quarter: 2020Q4

REPORT INFORMATION
  Report Type: Spontaneous
  Country: US (occurrence: US)
  Receive Date: 20200825
  Receipt Date: 20201222
  Transmission Date: 20210113
  Serious: Yes (Other)
  Sender: FDA-Public Use
  Company Number: US-PFIZER INC-2020326561

PATIENT
  Age: 63 Year
  Sex: Female
  Weight: 62.14 kg

DRUGS (2)
  1. CHANTIX [Suspect]
     Active Substance: VARENICLINE TARTRATE
     Indication: SMOKING CESSATION THERAPY
     Dosage: UNK
  2. CHANTIX [Suspect]
     Active Substance: VARENICLINE TARTRATE
     Dosage: 1 MG, 2X/DAY (1MG TABLETS, ONE IN THE MORNING AND ONE AT NIGHT)
     Dates: start: 202010

REACTIONS (7)
  - Lung opacity [Unknown]
  - Condition aggravated [Unknown]
  - Mental impairment [Unknown]
  - Prescription drug used without a prescription [Unknown]
  - Chronic obstructive pulmonary disease [Unknown]
  - Emphysema [Unknown]
  - Depression [Recovered/Resolved]
